FAERS Safety Report 8447231-1 (Version None)
Quarter: 2012Q2

REPORT INFORMATION
  Report Type: 
  Country: None (occurrence: None)
  Receive Date: 20120619
  Receipt Date: 20120607
  Transmission Date: 20120825
  Serious: Yes (Other)
  Sender: FDA-Public Use
  Company Number: CN-PFIZER INC-2012145127

PATIENT
  Age: 60 Year
  Sex: Female

DRUGS (20)
  1. EPIRUBICIN HYDROCHLORIDE [Suspect]
     Indication: HODGKIN'S DISEASE
     Dosage: 80 MG, 1X/DAY
     Route: 041
     Dates: start: 20100323, end: 20100323
  2. PREDNISONE [Concomitant]
     Dosage: UNK
     Route: 041
     Dates: start: 20100416, end: 20100416
  3. VINCRISTINE SULFATE [Concomitant]
     Indication: HODGKIN'S DISEASE
     Dosage: UNK
     Route: 041
     Dates: start: 20100323, end: 20100323
  4. VINCRISTINE SULFATE [Concomitant]
     Dosage: UNK
     Route: 041
     Dates: start: 20100506, end: 20100506
  5. CYCLOPHOSPHAMIDE [Concomitant]
     Dosage: UNK
     Route: 041
     Dates: start: 20100527, end: 20100527
  6. CYCLOPHOSPHAMIDE [Concomitant]
     Dosage: UNK
     Route: 041
     Dates: start: 20100618, end: 20100618
  7. EPIRUBICIN HYDROCHLORIDE [Suspect]
     Dosage: 80 MG, 1X/DAY
     Route: 041
     Dates: start: 20100416, end: 20100416
  8. PREDNISONE [Concomitant]
     Dosage: UNK
     Route: 041
     Dates: start: 20100527, end: 20100527
  9. EPIRUBICIN HYDROCHLORIDE [Suspect]
     Dosage: 80 MG, 1X/DAY
     Route: 041
     Dates: start: 20100527, end: 20100527
  10. CYCLOPHOSPHAMIDE [Concomitant]
     Dosage: UNK
     Route: 041
     Dates: start: 20100416, end: 20100416
  11. CYCLOPHOSPHAMIDE [Concomitant]
     Dosage: UNK
     Route: 041
     Dates: start: 20100506, end: 20100506
  12. PREDNISONE [Concomitant]
     Indication: HODGKIN'S DISEASE
     Dosage: UNK
     Route: 041
     Dates: start: 20100323, end: 20100323
  13. VINCRISTINE SULFATE [Concomitant]
     Dosage: UNK
     Route: 041
     Dates: start: 20100416, end: 20100416
  14. VINCRISTINE SULFATE [Concomitant]
     Dosage: UNK
     Route: 041
     Dates: start: 20100527, end: 20100527
  15. VINCRISTINE SULFATE [Concomitant]
     Dosage: UNK
     Route: 041
     Dates: start: 20100618, end: 20100618
  16. PREDNISONE [Concomitant]
     Dosage: UNK
     Route: 041
     Dates: start: 20100506, end: 20100506
  17. PREDNISONE [Concomitant]
     Dosage: UNK
     Route: 041
     Dates: start: 20100618, end: 20100618
  18. EPIRUBICIN HYDROCHLORIDE [Suspect]
     Dosage: 80 MG, 1X/DAY
     Route: 041
     Dates: start: 20100506, end: 20100506
  19. EPIRUBICIN HYDROCHLORIDE [Suspect]
     Dosage: 80 MG, 1X/DAY
     Route: 041
     Dates: start: 20100618, end: 20100618
  20. CYCLOPHOSPHAMIDE [Concomitant]
     Indication: HODGKIN'S DISEASE
     Dosage: UNK
     Route: 041
     Dates: start: 20100323, end: 20100323

REACTIONS (1)
  - ELECTROCARDIOGRAM QT PROLONGED [None]
